FAERS Safety Report 8990752 (Version 1)
Quarter: 2012Q4

REPORT INFORMATION
  Report Type: 
  Country: US (occurrence: US)
  Receive Date: 20121228
  Receipt Date: 20121228
  Transmission Date: 20130627
  Serious: No
  Sender: FDA-Public Use
  Company Number: US-PFIZER INC-2012331050

PATIENT
  Age: 45 Year
  Sex: Female
  Weight: 63 kg

DRUGS (1)
  1. RELPAX [Suspect]
     Indication: MIGRAINE HEADACHE
     Dosage: 40 mg, daily
     Dates: start: 20121018, end: 20121019

REACTIONS (2)
  - Local swelling [Recovered/Resolved]
  - Auricular swelling [Recovered/Resolved]
